FAERS Safety Report 8622006-9 (Version None)
Quarter: 2012Q3

REPORT INFORMATION
  Report Type: 
  Country: None (occurrence: None)
  Receive Date: 20120823
  Receipt Date: 20120823
  Transmission Date: 20120928
  Serious: No
  Sender: FDA-Public Use
  Company Number: None

PATIENT
  Sex: Female
  Weight: 70.3075 kg

DRUGS (1)
  1. CEFTRIAXONE [Suspect]
     Indication: OSTEOMYELITIS
     Dosage: 2 GRAMS, Q24H, IV
     Route: 042
     Dates: start: 20120726, end: 20120821

REACTIONS (3)
  - PRURITUS [None]
  - RASH [None]
  - EYELID OEDEMA [None]
